FAERS Safety Report 17979947 (Version 2)
Quarter: 2020Q3

REPORT INFORMATION
  Report Type: Spontaneous
  Country: GB (occurrence: GB)
  Receive Date: 20200703
  Receipt Date: 20200714
  Transmission Date: 20201103
  Serious: Yes (Other)
  Sender: FDA-Public Use
  Company Number: GB-MYLANLABS-2020M1059738

PATIENT
  Age: 54 Year
  Sex: Male

DRUGS (52)
  1. LACTULOSE. [Suspect]
     Active Substance: LACTULOSE
     Indication: PRODUCT USED FOR UNKNOWN INDICATION
     Dosage: DAILY DOSE TEXT: 10 ML
     Route: 065
  2. LORAZEPAM. [Suspect]
     Active Substance: LORAZEPAM
     Indication: PRODUCT USED FOR UNKNOWN INDICATION
     Dosage: DAILY DOSE TEXT: UNKNOWN
     Route: 065
  3. CEFTRIAXONE. [Suspect]
     Active Substance: CEFTRIAXONE
     Indication: PRODUCT USED FOR UNKNOWN INDICATION
     Dosage: DAILY DOSE TEXT: 2 G
     Route: 042
  4. THIAMIN                            /00056101/ [Suspect]
     Active Substance: THIAMINE
     Indication: PRODUCT USED FOR UNKNOWN INDICATION
     Dosage: DAILY DOSE TEXT: 100 MG 1/1DAYS
     Route: 048
  5. PARACETAMOL [Suspect]
     Active Substance: ACETAMINOPHEN
     Indication: PRODUCT USED FOR UNKNOWN INDICATION
     Dosage: DAILY DOSE TEXT: UNKNOWN
     Route: 065
  6. DALTEPARIN SODIUM [Suspect]
     Active Substance: DALTEPARIN SODIUM
     Indication: PRODUCT USED FOR UNKNOWN INDICATION
     Dosage: DAILY DOSE TEXT: 2500 IU 1/1 DAYS
     Route: 058
  7. ALFENTANIL. [Suspect]
     Active Substance: ALFENTANIL
     Indication: PRODUCT USED FOR UNKNOWN INDICATION
     Dosage: DAILY DOSE TEXT: UNKNOWN
     Route: 065
  8. TINZAPARIN SODIUM [Suspect]
     Active Substance: TINZAPARIN SODIUM
     Indication: PRODUCT USED FOR UNKNOWN INDICATION
     Dosage: DAILY DOSE TEXT: 3500 MICROLITERS 1/1DAYS
     Route: 065
  9. METOCLOPRAMIDE. [Concomitant]
     Active Substance: METOCLOPRAMIDE
     Indication: PRODUCT USED FOR UNKNOWN INDICATION
     Dosage: DAILY DOSE TEXT: 10MG
     Route: 042
  10. CLEXANE [Suspect]
     Active Substance: ENOXAPARIN SODIUM
     Indication: PRODUCT USED FOR UNKNOWN INDICATION
     Dosage: DAILY DOSE TEXT: 20MG 1/1DAYS
     Route: 058
  11. VITAMIN K [Suspect]
     Active Substance: PHYTONADIONE
     Indication: PRODUCT USED FOR UNKNOWN INDICATION
     Dosage: DAILY DOSE TEXT: UNKNOWN
     Route: 065
  12. FUROSEMIDE. [Suspect]
     Active Substance: FUROSEMIDE
     Indication: PRODUCT USED FOR UNKNOWN INDICATION
     Dosage: 20 MILLIGRAM, QD
     Route: 048
  13. TRICLOSAN. [Suspect]
     Active Substance: TRICLOSAN
     Indication: PRODUCT USED FOR UNKNOWN INDICATION
     Route: 065
  14. MAGNESIUM SULFATE. [Suspect]
     Active Substance: MAGNESIUM SULFATE
     Indication: PRODUCT USED FOR UNKNOWN INDICATION
     Dosage: DAILY DOSE TEXT: UNKNOWN
     Route: 065
  15. NORADRENALINE                      /00127501/ [Suspect]
     Active Substance: NOREPINEPHRINE
     Indication: PRODUCT USED FOR UNKNOWN INDICATION
     Dosage: DAILY DOSE TEXT: UNKNOWN
     Route: 065
  16. SODIUM BICARBONATE. [Suspect]
     Active Substance: SODIUM BICARBONATE
     Indication: PRODUCT USED FOR UNKNOWN INDICATION
     Dosage: DAILY DOSE TEXT: 100MG 1 HOUR
     Route: 042
  17. PROPOFOL. [Suspect]
     Active Substance: PROPOFOL
     Indication: PRODUCT USED FOR UNKNOWN INDICATION
     Dosage: DAILY DOSE TEXT: UNKNOWN
     Route: 065
  18. AQUASEPT [Suspect]
     Active Substance: TRICLOSAN
     Indication: PRODUCT USED FOR UNKNOWN INDICATION
     Dosage: DAILY DOSE TEXT: UNKNOWN
     Route: 065
  19. FRAGMIN [Suspect]
     Active Substance: DALTEPARIN SODIUM
     Indication: PRODUCT USED FOR UNKNOWN INDICATION
     Dosage: 250 INTERNATIONAL UNIT
     Route: 065
  20. SALBUTAMOL [Suspect]
     Active Substance: ALBUTEROL
     Indication: PRODUCT USED FOR UNKNOWN INDICATION
     Dosage: DAILY DOSE TEXT: AS NECESSARY
     Route: 065
  21. SODIUM CHLORIDE. [Suspect]
     Active Substance: SODIUM CHLORIDE
     Indication: PRODUCT USED FOR UNKNOWN INDICATION
     Dosage: DAILY DOSE TEXT: 0.9%
     Route: 042
  22. POTASSIUM PHOSPHATE                /00493501/ [Suspect]
     Active Substance: POTASSIUM PHOSPHATE, DIBASIC
     Indication: PRODUCT USED FOR UNKNOWN INDICATION
     Dosage: DAILY DOSE TEXT: UNKNOWN
     Route: 065
  23. INSULIN HUMAN [Suspect]
     Active Substance: INSULIN HUMAN
     Indication: PRODUCT USED FOR UNKNOWN INDICATION
     Route: 065
  24. HYDROCORTISONE. [Suspect]
     Active Substance: HYDROCORTISONE
     Indication: PRODUCT USED FOR UNKNOWN INDICATION
     Dosage: 100 MILLIGRAM, TOTAL
     Route: 065
  25. ACETYLSALICYLIC ACID [Concomitant]
     Active Substance: ASPIRIN
     Indication: PRODUCT USED FOR UNKNOWN INDICATION
     Dosage: UNK
     Route: 048
  26. SIMVASTATIN. [Suspect]
     Active Substance: SIMVASTATIN
     Indication: PRODUCT USED FOR UNKNOWN INDICATION
     Dosage: DAILY DOSE TEXT: 40MG 1/1DAYS
     Route: 065
  27. FLUCONAZOLE. [Suspect]
     Active Substance: FLUCONAZOLE
     Indication: PRODUCT USED FOR UNKNOWN INDICATION
     Dosage: DAILY DOSE TEXT: 200 MG 1/1DAYS
     Route: 042
  28. SULFADIAZINE. [Suspect]
     Active Substance: SULFADIAZINE
     Indication: PRODUCT USED FOR UNKNOWN INDICATION
     Dosage: DAILY DOSE TEXT: UNKNOWN
     Route: 061
  29. HYDROCORTISONE. [Suspect]
     Active Substance: HYDROCORTISONE
     Indication: PRODUCT USED FOR UNKNOWN INDICATION
     Dosage: DAILY DOSE TEXT: 100MG 1 TOTAL
     Route: 042
  30. ZOPLICONE [Concomitant]
     Active Substance: ZOPICLONE
     Indication: PRODUCT USED FOR UNKNOWN INDICATION
     Dosage: DAILY DOSE TEXT: UNKNOWN
     Route: 048
  31. ERYTHROMYCIN. [Concomitant]
     Active Substance: ERYTHROMYCIN
     Indication: PRODUCT USED FOR UNKNOWN INDICATION
     Dosage: DAILY DOSE TEXT: 250MG
     Route: 065
  32. PANTOPRAZOLE [Concomitant]
     Active Substance: PANTOPRAZOLE
     Indication: PRODUCT USED FOR UNKNOWN INDICATION
     Dosage: DAILY DOSE TEXT: 40MG
     Route: 042
  33. MIDODRINE [Concomitant]
     Active Substance: MIDODRINE
     Indication: PRODUCT USED FOR UNKNOWN INDICATION
     Dosage: DAILY DOSE TEXT: UNKNOWN
     Route: 048
  34. OMEPRAZOLE. [Suspect]
     Active Substance: OMEPRAZOLE
     Indication: PRODUCT USED FOR UNKNOWN INDICATION
     Dosage: DAILY DOSE TEXT: 40MG
     Route: 042
  35. SANDO K                            /00031402/ [Suspect]
     Active Substance: POTASSIUM CHLORIDE
     Indication: PRODUCT USED FOR UNKNOWN INDICATION
     Dosage: DAILY DOSE TEXT: 2 DL 3/1DAYS
     Route: 065
  36. CALCIUM CHLORIDE. [Suspect]
     Active Substance: CALCIUM CHLORIDE
     Indication: PRODUCT USED FOR UNKNOWN INDICATION
     Dosage: DAILY DOSE TEXT: UNKNOWN
     Route: 065
  37. PROPOFOL. [Suspect]
     Active Substance: PROPOFOL
     Indication: PRODUCT USED FOR UNKNOWN INDICATION
     Route: 042
  38. VANCOMYCIN [Concomitant]
     Active Substance: VANCOMYCIN
     Indication: PRODUCT USED FOR UNKNOWN INDICATION
     Dosage: DAILY DOSE TEXT: 1G 1/1DAYS
     Route: 042
  39. CIPROFLOXACIN. [Concomitant]
     Active Substance: CIPROFLOXACIN
     Indication: PRODUCT USED FOR UNKNOWN INDICATION
     Dosage: DAILY DOSE TEXT: 400MG 1/1DAYS
     Route: 042
  40. LANSOPRAZOLE. [Suspect]
     Active Substance: LANSOPRAZOLE
     Indication: PRODUCT USED FOR UNKNOWN INDICATION
     Dosage: DAILY DOSE TEXT: 30MG
     Route: 065
  41. BACTROBAN [Suspect]
     Active Substance: MUPIROCIN\MUPIROCIN CALCIUM
     Indication: PRODUCT USED FOR UNKNOWN INDICATION
     Dosage: DAILY DOSE TEXT: UNKNOWN
     Route: 065
  42. AMOXICILLIN. [Suspect]
     Active Substance: AMOXICILLIN
     Indication: PRODUCT USED FOR UNKNOWN INDICATION
     Dosage: DAILY DOSE TEXT: 1 G 3/1 DAYS
     Route: 042
  43. ACTRAPID [Suspect]
     Active Substance: INSULIN HUMAN
     Indication: PRODUCT USED FOR UNKNOWN INDICATION
     Dosage: DAILY DOSE TEXT: UNKNOWN
     Route: 042
  44. ATROVENT [Concomitant]
     Active Substance: IPRATROPIUM BROMIDE
     Indication: PRODUCT USED FOR UNKNOWN INDICATION
     Dosage: DAILY DOSE TEXT: AS NECESSARY
     Route: 065
  45. AMOXICILLIN. [Concomitant]
     Active Substance: AMOXICILLIN
     Indication: PRODUCT USED FOR UNKNOWN INDICATION
     Dosage: DAILY DOSE TEXT: 250MG
     Route: 048
     Dates: start: 20060913
  46. FUROSEMIDE. [Suspect]
     Active Substance: FUROSEMIDE
     Indication: PRODUCT USED FOR UNKNOWN INDICATION
     Dosage: DAILY DOSE TEXT: 20MG 2/1 DAYS
     Route: 042
  47. CALCIUM GLUCONATE. [Suspect]
     Active Substance: CALCIUM GLUCONATE
     Indication: PRODUCT USED FOR UNKNOWN INDICATION
     Dosage: DAILY DOSE TEXT: 10ML
     Route: 042
  48. POTASSIUM CHLORIDE. [Suspect]
     Active Substance: POTASSIUM CHLORIDE
     Indication: PRODUCT USED FOR UNKNOWN INDICATION
     Dosage: DAILY DOSE TEXT: UNKNOWN
     Route: 065
  49. DOBUTAMINE [Suspect]
     Active Substance: DOBUTAMINE HYDROCHLORIDE
     Indication: PRODUCT USED FOR UNKNOWN INDICATION
     Dosage: DAILY DOSE TEXT: UNKNOWN
     Route: 065
  50. PIRITON [Suspect]
     Active Substance: CHLORPHENIRAMINE MALEATE
     Indication: PRODUCT USED FOR UNKNOWN INDICATION
     Dosage: DAILY DOSE TEXT: 10MG 4/1DAYS
     Route: 042
  51. HEPARIN SODIUM. [Suspect]
     Active Substance: HEPARIN SODIUM
     Indication: PRODUCT USED FOR UNKNOWN INDICATION
     Dosage: 3500 MICROGRAMS PER INHALATION 1 DAILY
     Route: 065
  52. TAZOCIN [Concomitant]
     Active Substance: PIPERACILLIN SODIUM\TAZOBACTAM SODIUM
     Indication: PRODUCT USED FOR UNKNOWN INDICATION
     Dosage: DAILY DOSE TEXT: 4.5G 3/1DAYS
     Route: 065

REACTIONS (1)
  - Toxic epidermal necrolysis [Unknown]
